FAERS Safety Report 12438287 (Version 1)
Quarter: 2016Q2

REPORT INFORMATION
  Report Type: Report from Study
  Country: UA (occurrence: UA)
  Receive Date: 20160606
  Receipt Date: 20160606
  Transmission Date: 20160815
  Serious: Yes (Death)
  Sender: FDA-Public Use
  Company Number: UA-PFIZER INC-2016285353

PATIENT
  Age: 58 Year
  Sex: Female
  Weight: 78 kg

DRUGS (10)
  1. NEULASTA [Suspect]
     Active Substance: PEGFILGRASTIM
     Indication: NEUTROPENIA
     Dosage: DB: LONQUEX 6 MG OR NEULASTA 6 MG OR PLACEBO
     Dates: start: 20151105, end: 20151127
  2. CISPLATIN. [Suspect]
     Active Substance: CISPLATIN
     Dosage: 75 MG/M2, EVERY 3 WEEKS, ON DAY 1 OF EACH CYCLE
     Dates: start: 20151103, end: 20151125
  3. LONQUEX [Suspect]
     Active Substance: LIPEGFILGRASTIM
     Indication: NEUTROPENIA
     Dosage: DB: LONQUEX 6 MG OR NEULASTA 6 MG OR PLACEBO
     Route: 058
     Dates: start: 20151105, end: 20151127
  4. THEOPHYLLINE [Concomitant]
     Active Substance: THEOPHYLLINE ANHYDROUS
     Dosage: 200 MG, 1X/DAY
     Route: 042
     Dates: start: 20151125, end: 20151130
  5. ASCORBIC ACID. [Concomitant]
     Active Substance: ASCORBIC ACID
     Indication: DYSPNOEA
     Dosage: 200 DF, 1X/DAY
     Route: 042
     Dates: start: 20151125, end: 20151130
  6. THEOPHYLLINE [Concomitant]
     Active Substance: THEOPHYLLINE ANHYDROUS
     Indication: DYSPNOEA
     Dosage: 300 MG, 2X/DAY
     Route: 048
     Dates: start: 20151112
  7. PACLITAXEL. [Suspect]
     Active Substance: PACLITAXEL
     Dosage: 135 MG/M2, EVERY 3 WEEKS, ON DAY 0 OF EACH CYCLE
     Dates: start: 20151103, end: 20151125
  8. AMBROXOL [Concomitant]
     Active Substance: AMBROXOL
     Indication: COUGH
     Dosage: 30 MG, 2X/DAY
     Route: 048
     Dates: start: 20151112
  9. COCARBOXYLASE [Concomitant]
     Active Substance: COCARBOXYLASE
     Indication: FATIGUE
     Dosage: 100 DF, 1X/DAY
     Route: 042
     Dates: start: 20151125, end: 20151130
  10. INOSINE [Concomitant]
     Active Substance: INOSINE
     Indication: FATIGUE
     Dosage: 100 MG, 1X/DAY
     Route: 042
     Dates: start: 20151125, end: 20151130

REACTIONS (2)
  - Cardiovascular insufficiency [Fatal]
  - Pulmonary embolism [Fatal]

NARRATIVE: CASE EVENT DATE: 20151214
